FAERS Safety Report 18747469 (Version 1)
Quarter: 2021Q1

REPORT INFORMATION
  Report Type: Spontaneous
  Country: CO (occurrence: CO)
  Receive Date: 20210115
  Receipt Date: 20210115
  Transmission Date: 20210419
  Serious: Yes (Death)
  Sender: FDA-Public Use
  Company Number: CO-CELGENEUS-COL-20210103361

PATIENT
  Age: 81 Year
  Sex: Female

DRUGS (7)
  1. BISACODYL. [Concomitant]
     Active Substance: BISACODYL
     Indication: CONSTIPATION
     Route: 065
     Dates: start: 201906
  2. LOPERAMIDE [Concomitant]
     Active Substance: LOPERAMIDE
     Indication: DIZZINESS
  3. POMALYST [Suspect]
     Active Substance: POMALIDOMIDE
     Indication: PLASMA CELL MYELOMA
     Dosage: 4 MILLIGRAM
     Route: 048
     Dates: start: 20190605, end: 20201205
  4. HYDROCODONE [Concomitant]
     Active Substance: HYDROCODONE
     Indication: FALL
     Route: 065
  5. ACETAMINOPHEN. [Concomitant]
     Active Substance: ACETAMINOPHEN
     Indication: BACK PAIN
     Route: 065
     Dates: start: 201910
  6. ACETAMINOPHEN. [Concomitant]
     Active Substance: ACETAMINOPHEN
     Indication: FALL
  7. LOPERAMIDE [Concomitant]
     Active Substance: LOPERAMIDE
     Indication: DIARRHOEA
     Route: 065
     Dates: start: 201906

REACTIONS (1)
  - Death [Fatal]

NARRATIVE: CASE EVENT DATE: 20201205
